FAERS Safety Report 15195374 (Version 1)
Quarter: 2018Q3

REPORT INFORMATION
  Report Type: Spontaneous
  Country: US (occurrence: US)
  Receive Date: 20180626
  Receipt Date: 20180626
  Transmission Date: 20181010
  Serious: No
  Sender: FDA-Public Use
  Company Number: None

PATIENT
  Age: 99 Year
  Sex: Female
  Weight: 35.83 kg

DRUGS (1)
  1. ATACAND [Suspect]
     Active Substance: CANDESARTAN CILEXETIL
     Indication: PRODUCT USED FOR UNKNOWN INDICATION
     Route: 048
     Dates: start: 201305

REACTIONS (14)
  - Joint swelling [None]
  - Implant site reaction [None]
  - Spinal deformity [None]
  - Product substitution issue [None]
  - Vision blurred [None]
  - Drug hypersensitivity [None]
  - Memory impairment [None]
  - Pain in extremity [None]
  - Thinking abnormal [None]
  - Cough [None]
  - Gastrointestinal disorder [None]
  - Drug ineffective [None]
  - Cognitive disorder [None]
  - Drug dose omission [None]
